FAERS Safety Report 7099654-3 (Version None)
Quarter: 2010Q4

REPORT INFORMATION
  Report Type: 
  Country: None (occurrence: None)
  Receive Date: 20101112
  Receipt Date: 20101108
  Transmission Date: 20110411
  Serious: Yes (Other)
  Sender: FDA-Public Use
  Company Number: US-PFIZER INC-2010143254

PATIENT
  Sex: Male
  Weight: 52.154 kg

DRUGS (4)
  1. LYRICA [Suspect]
     Indication: GASTROOESOPHAGEAL REFLUX DISEASE
     Dosage: 100 MG DAILY
     Route: 048
     Dates: start: 20100901
  2. BEER [Suspect]
  3. VITAMINS [Concomitant]
     Dosage: UNK
  4. AMLODIPINE [Concomitant]
     Indication: HYPERTENSION
     Dosage: 5MG

REACTIONS (1)
  - RENAL PAIN [None]
